FAERS Safety Report 4552966-7 (Version None)
Quarter: 2005Q1

REPORT INFORMATION
  Report Type: 
  Country: None (occurrence: None)
  Receive Date: 20050113
  Receipt Date: 20050106
  Transmission Date: 20050727
  Serious: Yes (Death, Hospitalization)
  Sender: FDA-Public Use
  Company Number: 2005UW00319

PATIENT
  Sex: Female

DRUGS (2)
  1. CRESTOR [Suspect]
     Dosage: 10 MG PO
     Route: 048
  2. MULTIPLE CARDIOVASCULAR AGENTS [Concomitant]

REACTIONS (5)
  - ACUTE MYOCARDIAL INFARCTION [None]
  - ELECTROMECHANICAL DISSOCIATION [None]
  - FALL [None]
  - PULMONARY EMBOLISM [None]
  - PULMONARY OEDEMA [None]
